FAERS Safety Report 8033151-3 (Version None)
Quarter: 2012Q1

REPORT INFORMATION
  Report Type: 
  Country: None (occurrence: None)
  Receive Date: 20120110
  Receipt Date: 20120110
  Transmission Date: 20120608
  Serious: Yes (Other)
  Sender: FDA-Public Use
  Company Number: None

PATIENT
  Age: 42 Year
  Sex: Female
  Weight: 65.77 kg

DRUGS (1)
  1. CHORIONIC GONADOTROPIN [Suspect]
     Indication: WEIGHT CONTROL
     Dosage: 20 DROPS
     Dates: start: 20111112, end: 20111127

REACTIONS (2)
  - MIGRAINE [None]
  - AMNESIA [None]
